FAERS Safety Report 15609631 (Version 2)
Quarter: 2020Q2

REPORT INFORMATION
  Report Type: Spontaneous
  Country: US (occurrence: US)
  Receive Date: 20181113
  Receipt Date: 20200527
  Transmission Date: 20200713
  Serious: Yes (Hospitalization, Other)
  Sender: FDA-Public Use
  Company Number: US-BRISTOL-MYERS SQUIBB COMPANY-BMS-2018-103869

PATIENT
  Sex: Female

DRUGS (1)
  1. SPRYCEL [Suspect]
     Active Substance: DASATINIB
     Indication: RECTAL CANCER
     Dosage: 140 MG, QD
     Route: 048
     Dates: start: 20180530

REACTIONS (2)
  - Intentional product use issue [Unknown]
  - Bone marrow disorder [Unknown]
